FAERS Safety Report 22648087 (Version 2)
Quarter: 2023Q2

REPORT INFORMATION
  Report Type: Report from Study
  Country: BR (occurrence: BR)
  Receive Date: 20230628
  Receipt Date: 20230630
  Transmission Date: 20230722
  Serious: Yes (Other)
  Sender: FDA-Public Use
  Company Number: BR-ABBVIE-5305199

PATIENT
  Sex: Female
  Weight: 70 kg

DRUGS (4)
  1. RINVOQ [Suspect]
     Active Substance: UPADACITINIB
     Indication: Rheumatoid arthritis
     Dosage: 1 TABLET
     Route: 048
     Dates: start: 20210716
  2. DESLORATADINE [Concomitant]
     Active Substance: DESLORATADINE
     Indication: Rhinitis
     Dosage: 1 TABLET
     Route: 065
  3. NASONEX [Concomitant]
     Active Substance: MOMETASONE FUROATE
     Indication: Rhinitis
     Dosage: MOMETASONE FUROATE
  4. FLOGORAL [Concomitant]
     Indication: Rhinitis
     Dosage: BENZYDAMINE HYDROCHLORIDE?FREQUENCY TEXT: MAXIMUM 2 TIMES A DAY
     Route: 065

REACTIONS (9)
  - Intestinal obstruction [Recovered/Resolved]
  - Rhinitis [Unknown]
  - Pain in extremity [Unknown]
  - Pain [Not Recovered/Not Resolved]
  - Functional gastrointestinal disorder [Recovered/Resolved]
  - Bone pain [Not Recovered/Not Resolved]
  - Pain [Recovered/Resolved]
  - Arthralgia [Not Recovered/Not Resolved]
  - Neck pain [Unknown]

NARRATIVE: CASE EVENT DATE: 20230101
